FAERS Safety Report 9504104 (Version 1)
Quarter: 2013Q3

REPORT INFORMATION
  Report Type: Spontaneous
  Country: US (occurrence: US)
  Receive Date: 20130906
  Receipt Date: 20130906
  Transmission Date: 20140515
  Serious: Yes (Hospitalization)
  Sender: FDA-Public Use
  Company Number: US-BAYER-2013-106632

PATIENT
  Age: 41 Year
  Sex: Female
  Weight: 87.53 kg

DRUGS (9)
  1. YAZ [Suspect]
  2. HYDROCHLOROTHIAZIDE [Concomitant]
     Dosage: 75-50 MG
  3. AMOXICILLIN [Concomitant]
     Dosage: 500 MG, UNK
  4. ACETAMINOPHEN [Concomitant]
     Dosage: 100-650 MG
  5. BYSTOLIC [Concomitant]
     Dosage: 5 MG, OM
     Route: 048
  6. TRIAMTERENE [Concomitant]
     Dosage: 50 MG, UNK
     Route: 048
  7. ZANTAC [Concomitant]
     Dosage: 150 MG, UNK
     Route: 048
  8. PAMELOR [Concomitant]
  9. TESSALON [Concomitant]

REACTIONS (2)
  - Pulmonary embolism [None]
  - Deep vein thrombosis [None]
